FAERS Safety Report 4882795-6 (Version None)
Quarter: 2005Q4

REPORT INFORMATION
  Report Type: 
  Country: None (occurrence: None)
  Receive Date: 20051201
  Receipt Date: 20050927
  Transmission Date: 20060501
  Serious: No
  Sender: FDA-Public Use
  Company Number: 2005PV002575

PATIENT
  Age: 59 Year
  Sex: Female
  Weight: 82.5547 kg

DRUGS (6)
  1. BYETTA [Suspect]
     Indication: DIABETES MELLITUS NON-INSULIN-DEPENDENT
     Dosage: 5 MCG;BID;SC
     Route: 058
     Dates: start: 20050926
  2. LANTUS [Concomitant]
  3. METFORMIN HCL [Concomitant]
  4. GLUCOTROL [Concomitant]
  5. DYNACIRC [Concomitant]
  6. LIPITOR [Concomitant]

REACTIONS (3)
  - BLOOD GLUCOSE INCREASED [None]
  - INSOMNIA [None]
  - NAUSEA [None]
